FAERS Safety Report 5634753-1 (Version None)
Quarter: 2008Q1

REPORT INFORMATION
  Report Type: 
  Country: None (occurrence: None)
  Receive Date: 20080221
  Receipt Date: 20080221
  Transmission Date: 20080703
  Serious: Yes (Life-Threatening, Hospitalization, Disabling)
  Sender: FDA-Public Use
  Company Number: None

PATIENT
  Age: 64 Year
  Sex: Female

DRUGS (1)
  1. COUMADIN [Suspect]
     Dosage: VARIES PO
     Route: 048

REACTIONS (1)
  - HAEMORRHAGIC STROKE [None]
